FAERS Safety Report 25657328 (Version 1)
Quarter: 2025Q3

REPORT INFORMATION
  Report Type: Report from Study
  Country: US (occurrence: US)
  Receive Date: 20250808
  Receipt Date: 20250808
  Transmission Date: 20251021
  Serious: Yes (Other)
  Sender: UCB
  Company Number: US-UCBSA-2025048353

PATIENT
  Age: 65 Year
  Sex: Female

DRUGS (1)
  1. LACOSAMIDE [Suspect]
     Active Substance: LACOSAMIDE
     Indication: Epilepsy
     Dosage: 100 MILLIGRAM, 2X/DAY (BID)
     Dates: start: 2004

REACTIONS (3)
  - Intervertebral disc protrusion [Not Recovered/Not Resolved]
  - Bursitis [Not Recovered/Not Resolved]
  - Intervertebral disc operation [Not Recovered/Not Resolved]

NARRATIVE: CASE EVENT DATE: 20250624
